FAERS Safety Report 13363403 (Version 2)
Quarter: 2017Q1

REPORT INFORMATION
  Report Type: Spontaneous
  Country: AT (occurrence: AT)
  Receive Date: 20170323
  Receipt Date: 20170328
  Transmission Date: 20170429
  Serious: Yes (Hospitalization)
  Sender: FDA-Public Use
  Company Number: AT-PFIZER INC-2017121865

PATIENT
  Age: 76 Year
  Sex: Female
  Weight: 73.2 kg

DRUGS (11)
  1. LANITOP [Concomitant]
     Active Substance: METILDIGOXIN
     Dosage: 0.1 MG,  DOSE NOT CHANGED SINCE A LONG TIME
     Route: 048
  2. DOMINAL (PROTHIPENDYL HYDROCHLORIDE) [Suspect]
     Active Substance: PROTHIPENDYL HYDROCHLORIDE
     Dosage: 80 MG, UNK
     Route: 048
     Dates: start: 201412, end: 20150201
  3. SERTRALINE HCL [Suspect]
     Active Substance: SERTRALINE HYDROCHLORIDE
     Dosage: 50 MG, UNK
     Route: 048
     Dates: start: 201412, end: 20141230
  4. SERTRALINE HCL [Suspect]
     Active Substance: SERTRALINE HYDROCHLORIDE
     Dosage: 150 MG, UNK
     Route: 048
     Dates: start: 20150214
  5. CONCOR [Concomitant]
     Active Substance: BISOPROLOL FUMARATE
     Dosage: 5 MG, DOSE NOT CHANGED SINCE A LONG TIME
     Route: 048
  6. SERTRALINE HCL [Suspect]
     Active Substance: SERTRALINE HYDROCHLORIDE
     Dosage: 100 MG, UNK
     Route: 048
     Dates: start: 20141231, end: 20150213
  7. OLEOVIT [Concomitant]
     Dosage: 28 GTT, DOSE NOT CHANGED SINCE A LONG TIME
     Route: 048
  8. RAMIPRIL. [Concomitant]
     Active Substance: RAMIPRIL
     Dosage: 2.5 MG, DOSE NOT CHANGED SINCE A LONG TIME
     Route: 048
  9. PANTOPRAZOLE SODIUM SESQUIHYDRATE [Concomitant]
     Active Substance: PANTOPRAZOLE SODIUM
     Dosage: 20-40MG, DOSE NOT CHANGED SINCE A LONG TIME
     Route: 048
  10. XARELTO [Concomitant]
     Active Substance: RIVAROXABAN
     Dosage: 20 MG, DOSE NOT CHANGED SINCE A LONG TIME
  11. SIMVASTATIN. [Concomitant]
     Active Substance: SIMVASTATIN
     Dosage: 40 MG,  DOSE NOT CHANGED SINCE A LONG TIME
     Route: 048

REACTIONS (1)
  - Delusional disorder, unspecified type [Recovering/Resolving]
